FAERS Safety Report 7035613-4 (Version None)
Quarter: 2010Q4

REPORT INFORMATION
  Report Type: 
  Country: None (occurrence: None)
  Receive Date: 20101008
  Receipt Date: 20100927
  Transmission Date: 20110411
  Serious: Yes (Hospitalization, Other)
  Sender: FDA-Public Use
  Company Number: NO-PFIZER INC-2010108051

PATIENT
  Age: 41 Year
  Sex: Male

DRUGS (5)
  1. NEURONTIN [Suspect]
     Indication: NEURALGIA
     Dosage: 800 MG, 3X/DAY
     Dates: start: 20090101, end: 20090801
  2. LYRICA [Suspect]
     Indication: NEURALGIA
     Dosage: 600 MG, 1X/DAY
     Dates: start: 20090801
  3. LYRICA [Suspect]
     Dosage: 150 MG, 2X/DAY
  4. LYRICA [Suspect]
     Dosage: 300 MG, 2X/DAY
  5. WELLBUTRIN [Concomitant]
     Indication: DEPRESSION
     Dosage: 150 MG, 1X/DAY

REACTIONS (3)
  - BLOOD CHOLESTEROL INCREASED [None]
  - NEPHRITIS [None]
  - RHABDOMYOLYSIS [None]
